FAERS Safety Report 20774250 (Version 16)
Quarter: 2024Q1

REPORT INFORMATION
  Report Type: Spontaneous
  Country: US (occurrence: US)
  Receive Date: 20220502
  Receipt Date: 20240110
  Transmission Date: 20240409
  Serious: Yes (Hospitalization, Other)
  Sender: FDA-Public Use
  Company Number: US-PFIZER INC-202200533699

PATIENT
  Age: 76 Year
  Sex: Female
  Weight: 84.807 kg

DRUGS (2)
  1. IBRANCE [Suspect]
     Active Substance: PALBOCICLIB
     Dosage: 125 MG
  2. IBRANCE [Suspect]
     Active Substance: PALBOCICLIB
     Dosage: 100 MG

REACTIONS (13)
  - Pneumonia [Unknown]
  - COVID-19 [Unknown]
  - Cerebrovascular accident [Unknown]
  - Choking [Unknown]
  - Neoplasm progression [Unknown]
  - Reaction to excipient [Unknown]
  - Abdominal discomfort [Unknown]
  - Vomiting [Unknown]
  - Rash [Unknown]
  - Dysphagia [Unknown]
  - White blood cell count decreased [Unknown]
  - Odynophagia [Not Recovered/Not Resolved]
  - Product dispensing error [Unknown]
